FAERS Safety Report 4650860-4 (Version None)
Quarter: 2005Q2

REPORT INFORMATION
  Report Type: 
  Country: None (occurrence: None)
  Receive Date: 20050428
  Receipt Date: 20050428
  Transmission Date: 20051028
  Serious: Yes (Other)
  Sender: FDA-Public Use
  Company Number: None

PATIENT
  Age: 74 Year
  Sex: Female
  Weight: 63.5036 kg

DRUGS (1)
  1. NORVASC 10 MG DO NOT KNOW MFG [Suspect]
     Indication: HYPERTENSION
     Dosage: 1 PILL IN AM PER DAY

REACTIONS (1)
  - JOINT SWELLING [None]
